FAERS Safety Report 9938399 (Version 2)
Quarter: 2014Q1

REPORT INFORMATION
  Report Type: Report from Study
  Country: US (occurrence: US)
  Receive Date: 20140303
  Receipt Date: 20140303
  Transmission Date: 20141002
  Serious: Yes (Other)
  Sender: FDA-Public Use
  Company Number: US-ABBVIE-08P-163-0445061-00

PATIENT
  Age: 22 Year
  Sex: Male
  Weight: 63.56 kg

DRUGS (11)
  1. HUMIRA 40 MG/0.8 ML PEN [Suspect]
     Indication: ANKYLOSING SPONDYLITIS
     Route: 058
  2. MOBIC [Concomitant]
     Indication: TENDONITIS
     Route: 048
     Dates: start: 2005
  3. PROVIGIL [Concomitant]
     Indication: FATIGUE
     Route: 048
     Dates: start: 200802
  4. AMBIEN [Concomitant]
     Indication: INSOMNIA
     Route: 048
     Dates: start: 200802
  5. DARVOCET-N [Concomitant]
     Indication: PAIN
     Route: 048
     Dates: start: 200802
  6. LORTAB [Concomitant]
     Indication: PAIN
     Route: 048
     Dates: start: 200802
  7. PREDNISONE [Concomitant]
     Indication: PRODUCT USED FOR UNKNOWN INDICATION
  8. FLOMAX [Concomitant]
     Indication: NEPHROLITHIASIS
  9. SULFASALAZINE [Concomitant]
     Indication: PRODUCT USED FOR UNKNOWN INDICATION
     Dosage: DAILY
  10. ENTOCORT [Concomitant]
     Indication: CROHN^S DISEASE
  11. FENTANYL [Concomitant]
     Indication: PRODUCT USED FOR UNKNOWN INDICATION

REACTIONS (3)
  - Nephrolithiasis [Unknown]
  - Haematuria [Recovered/Resolved]
  - Urinary tract infection [Unknown]
